FAERS Safety Report 22760288 (Version 5)
Quarter: 2023Q4

REPORT INFORMATION
  Report Type: Spontaneous
  Country: BR (occurrence: BR)
  Receive Date: 20230728
  Receipt Date: 20231024
  Transmission Date: 20240109
  Serious: Yes (Hospitalization, Disabling, Other)
  Sender: FDA-Public Use
  Company Number: BR-CHEPLA-2023009272

PATIENT
  Sex: Male
  Weight: 68 kg

DRUGS (3)
  1. CLONAZEPAM [Suspect]
     Active Substance: CLONAZEPAM
     Indication: Anxiety
     Dosage: EVERY NIGHT. RIVOTRIL 2 MG TABLETS??DAILY DOSE: 1 DOSAGE FORM
     Route: 048
     Dates: start: 1989, end: 20230813
  2. CLONAZEPAM [Suspect]
     Active Substance: CLONAZEPAM
     Indication: Anxiety
     Dosage: RIVOTRIL 0.25 MG
     Route: 060
     Dates: start: 2022, end: 202308
  3. CLONAZEPAM [Suspect]
     Active Substance: CLONAZEPAM
     Indication: Anxiety
     Dosage: CLONAZEPAM (FROM OTHER LABORATORY)
     Dates: start: 20230813

REACTIONS (8)
  - Drug dependence [Recovered/Resolved]
  - Open angle glaucoma [Not Recovered/Not Resolved]
  - Withdrawal syndrome [Recovered/Resolved]
  - Weaning failure [Recovered/Resolved]
  - Drug ineffective [Recovered/Resolved]
  - Nightmare [Recovered/Resolved]
  - Somnolence [Recovered/Resolved]
  - Negative thoughts [Recovered/Resolved]

NARRATIVE: CASE EVENT DATE: 19860101
